FAERS Safety Report 20077281 (Version 1)
Quarter: 2021Q4

REPORT INFORMATION
  Report Type: Spontaneous
  Country: US (occurrence: None)
  Receive Date: 20211116
  Receipt Date: 20211116
  Transmission Date: 20220303
  Serious: Yes (Life-Threatening, Hospitalization)
  Sender: FDA-Public Use
  Company Number: None

PATIENT
  Age: 57 Year
  Sex: Female
  Weight: 62.1 kg

DRUGS (12)
  1. INFLECTRA [Suspect]
     Active Substance: INFLIXIMAB-DYYB
     Indication: Colitis ulcerative
     Route: 042
     Dates: start: 20210608, end: 20210831
  2. IMURAN [Concomitant]
     Active Substance: AZATHIOPRINE
  3. plaqunel [Concomitant]
  4. ADDERALL [Concomitant]
     Active Substance: AMPHETAMINE ASPARTATE\AMPHETAMINE SULFATE\DEXTROAMPHETAMINE SACCHARATE\DEXTROAMPHETAMINE SULFATE
  5. MEMANTINE [Concomitant]
     Active Substance: MEMANTINE
  6. spirotlactone [Concomitant]
  7. webutrin [Concomitant]
  8. omprezele [Concomitant]
  9. clonezpam [Concomitant]
  10. ZOFRAN [Concomitant]
     Active Substance: ONDANSETRON HYDROCHLORIDE
  11. pro and prebiotic [Concomitant]
  12. ASPIRIN [Concomitant]
     Active Substance: ASPIRIN

REACTIONS (11)
  - Malaise [None]
  - Headache [None]
  - Nausea [None]
  - Fatigue [None]
  - Frequent bowel movements [None]
  - Condition aggravated [None]
  - Muscle spasms [None]
  - Constipation [None]
  - Faecaloma [None]
  - Large intestine perforation [None]
  - Therapy non-responder [None]

NARRATIVE: CASE EVENT DATE: 20211012
